FAERS Safety Report 13427232 (Version 1)
Quarter: 2017Q2

REPORT INFORMATION
  Report Type: Spontaneous
  Country: ES (occurrence: ES)
  Receive Date: 20170411
  Receipt Date: 20170411
  Transmission Date: 20170830
  Serious: Yes (Hospitalization)
  Sender: FDA-Public Use
  Company Number: PHHY2017ES050860

PATIENT

DRUGS (14)
  1. MYFORTIC [Suspect]
     Active Substance: MYCOPHENOLATE SODIUM
     Indication: LUNG TRANSPLANT
     Dosage: 180 MG, BID
     Route: 048
     Dates: start: 20161110, end: 20161111
  2. PREDNISONE. [Suspect]
     Active Substance: PREDNISONE
     Indication: LUNG TRANSPLANT
     Dosage: 5 MG, QD
     Route: 048
     Dates: end: 20171128
  3. NOLOTIL [Suspect]
     Active Substance: METAMIZOLE
     Indication: NECK PAIN
     Dosage: UNK UNK, QD
     Route: 048
     Dates: start: 20161110
  4. PARACETAMOL [Concomitant]
     Active Substance: ACETAMINOPHEN
     Indication: NECK PAIN
     Dosage: UNK
     Route: 065
     Dates: start: 20161114
  5. OMEPRAZOLE. [Concomitant]
     Active Substance: OMEPRAZOLE
     Indication: NECK PAIN
     Dosage: UNK
     Route: 065
     Dates: start: 20161114
  6. PAROXETINE. [Suspect]
     Active Substance: PAROXETINE
     Indication: DEPRESSION
     Dosage: 40 MG, QD
     Route: 048
  7. SANDIMMUN NEORAL [Suspect]
     Active Substance: CYCLOSPORINE
     Indication: LUNG TRANSPLANT
     Dosage: 75 MG, BID
     Route: 048
  8. METAMIZOLE [Concomitant]
     Active Substance: METAMIZOLE
     Indication: VOMITING
  9. FENTANILO [Concomitant]
     Active Substance: FENTANYL
     Indication: VOMITING
  10. METAMIZOLE [Concomitant]
     Active Substance: METAMIZOLE
     Indication: NECK PAIN
     Dosage: UNK
     Route: 065
     Dates: start: 20161114
  11. PARACETAMOL [Concomitant]
     Active Substance: ACETAMINOPHEN
     Indication: VOMITING
  12. OMEPRAZOLE. [Concomitant]
     Active Substance: OMEPRAZOLE
     Indication: VOMITING
  13. SINTROM [Suspect]
     Active Substance: ACENOCOUMAROL
     Indication: DEEP VEIN THROMBOSIS
     Dosage: UNK
     Route: 048
     Dates: end: 20161128
  14. FENTANILO [Concomitant]
     Active Substance: FENTANYL
     Indication: NECK PAIN
     Dosage: UNK
     Route: 065
     Dates: start: 20161114

REACTIONS (1)
  - Upper gastrointestinal haemorrhage [Recovered/Resolved]

NARRATIVE: CASE EVENT DATE: 20161127
